FAERS Safety Report 7756327-9 (Version None)
Quarter: 2011Q3

REPORT INFORMATION
  Report Type: 
  Country: None (occurrence: None)
  Receive Date: 20110901
  Receipt Date: 20110823
  Transmission Date: 20111222
  Serious: Yes (Death)
  Sender: FDA-Public Use
  Company Number: 2011PROUSA00555

PATIENT
  Age: 75 Year
  Sex: Male
  Weight: 169.1 kg

DRUGS (2)
  1. PROVENGE [Suspect]
     Indication: PROSTATE CANCER METASTATIC
     Dosage: 250 ML, SINGLE, INTRAVENOUS;
     Route: 042
     Dates: start: 20110715, end: 20110715
  2. PROVENGE [Suspect]
     Indication: PROSTATE CANCER METASTATIC
     Dosage: 250 ML, SINGLE INTRAVENOUS;
     Route: 042
     Dates: start: 20110729, end: 20110729

REACTIONS (2)
  - URETHRAL HAEMORRHAGE [None]
  - NEOPLASM PROGRESSION [None]
